FAERS Safety Report 9467034 (Version 9)
Quarter: 2015Q3

REPORT INFORMATION
  Report Type: Spontaneous
  Country: US (occurrence: US)
  Receive Date: 20130820
  Receipt Date: 20150929
  Transmission Date: 20151125
  Serious: Yes (Hospitalization, Other)
  Sender: FDA-Public Use
  Company Number: US-GLAXOSMITHKLINE-A1038291A

PATIENT
  Sex: Female

DRUGS (9)
  1. FLOLAN [Suspect]
     Active Substance: EPOPROSTENOL SODIUM
     Indication: PULMONARY ARTERIAL HYPERTENSION
     Dosage: UNK
  2. ADCIRCA [Concomitant]
     Active Substance: TADALAFIL
  3. FLOLAN [Suspect]
     Active Substance: EPOPROSTENOL SODIUM
     Dosage: 34NG/KG/MIN CONTINUOUSLY, 1.5MG VIAL STR
     Route: 042
  4. FLOLAN [Suspect]
     Active Substance: EPOPROSTENOL SODIUM
     Dosage: 25.4 NG/KG MIN/CONCENTRATION 60,000NG/ML PUMP RATE 82ML/DAY
     Route: 042
  5. FLOLAN [Suspect]
     Active Substance: EPOPROSTENOL SODIUM
     Indication: PULMONARY ARTERIAL HYPERTENSION
     Dosage: DOSE: 9 NG/KG/MIN, CONCENTRATION: 30,000 NG/ML, VIAL STRENGTH: 1.5 MG.DOSE: 26.52 NG/KG/MIN, CO[...]
     Route: 042
     Dates: start: 20130805
  6. FLOLAN [Suspect]
     Active Substance: EPOPROSTENOL SODIUM
     Dosage: UNK
  7. FLOLAN [Suspect]
     Active Substance: EPOPROSTENOL SODIUM
     Dosage: 34 NG/KG/MIN CONTINUOUS
     Route: 042
  8. FLOLAN [Suspect]
     Active Substance: EPOPROSTENOL SODIUM
     Dosage: UNK, Z
     Route: 042
  9. FLOLAN [Suspect]
     Active Substance: EPOPROSTENOL SODIUM
     Dosage: 34 NG/KG/MIN CONTINUOUSLY
     Route: 042

REACTIONS (21)
  - Dyspnoea exertional [Unknown]
  - Ear pain [Unknown]
  - Mammogram [Unknown]
  - Device connection issue [Recovered/Resolved]
  - Oxygen supplementation [Not Recovered/Not Resolved]
  - Oxygen saturation decreased [Unknown]
  - Device infusion issue [Recovered/Resolved]
  - Cough [Not Recovered/Not Resolved]
  - Musculoskeletal chest pain [Unknown]
  - Device malfunction [Recovered/Resolved]
  - Dyspnoea [Not Recovered/Not Resolved]
  - Nasal congestion [Unknown]
  - Sinusitis [Unknown]
  - Injection site vesicles [Not Recovered/Not Resolved]
  - Oedema peripheral [Unknown]
  - Oropharyngeal pain [Unknown]
  - Hospitalisation [Unknown]
  - Bronchitis [Unknown]
  - Fluid retention [Unknown]
  - Localised oedema [Unknown]
  - Pain in jaw [Unknown]
